FAERS Safety Report 5019032-8 (Version None)
Quarter: 2006Q2

REPORT INFORMATION
  Report Type: 
  Country: None (occurrence: None)
  Receive Date: 20060531
  Receipt Date: 20060522
  Transmission Date: 20061013
  Serious: Yes (Other)
  Sender: FDA-Public Use
  Company Number: 2006029894

PATIENT
  Age: 54 Year
  Sex: Female

DRUGS (6)
  1. NORVASC [Suspect]
     Indication: HYPERTENSION
     Dosage: SEE IMAGE
     Dates: start: 20050531, end: 20051001
  2. NORVASC [Suspect]
     Indication: HYPERTENSION
     Dosage: SEE IMAGE
     Dates: start: 20051001, end: 20051221
  3. HYDROCHLOROTHIAZIDE [Concomitant]
  4. LISINOPRIL W/HYDROCHLOROTHIAZIDE (HYDROCHLOROTHIAZIDE, LISINOPRIL) [Concomitant]
  5. PRINIVIL [Concomitant]
  6. XENICAL [Concomitant]

REACTIONS (5)
  - GINGIVAL BLEEDING [None]
  - GINGIVAL HYPERTROPHY [None]
  - GINGIVITIS [None]
  - LOOSE TOOTH [None]
  - ORAL INFECTION [None]
